FAERS Safety Report 4886922-6 (Version None)
Quarter: 2006Q1

REPORT INFORMATION
  Report Type: 
  Country: None (occurrence: None)
  Receive Date: 20060118
  Receipt Date: 20051229
  Transmission Date: 20060701
  Serious: Yes (Hospitalization)
  Sender: FDA-Public Use
  Company Number: US_0509122553

PATIENT
  Age: 39 Year
  Sex: Female
  Weight: 91.4 kg

DRUGS (9)
  1. ZYPREXA [Suspect]
     Dosage: ORAL
     Route: 048
     Dates: start: 20010101, end: 20060701
  2. RISPERDAL [Concomitant]
  3. DEPAKOTE [Concomitant]
  4. REMERON [Concomitant]
  5. LIPITOR [Concomitant]
  6. WELLBUTRIN [Concomitant]
  7. NEURONTIN [Concomitant]
  8. ALBUTEROL [Concomitant]
  9. CELEXA [Concomitant]

REACTIONS (9)
  - BLOOD SODIUM DECREASED [None]
  - COLITIS [None]
  - DIABETES MELLITUS [None]
  - DIABETIC KETOACIDOSIS [None]
  - DIABETIC NEUROPATHY [None]
  - DIVERTICULITIS [None]
  - HEPATIC STEATOSIS [None]
  - LEUKOCYTOSIS [None]
  - WEIGHT INCREASED [None]
